FAERS Safety Report 24855737 (Version 1)
Quarter: 2025Q1

REPORT INFORMATION
  Report Type: Spontaneous
  Country: RO (occurrence: RO)
  Receive Date: 20250117
  Receipt Date: 20250117
  Transmission Date: 20250408
  Serious: Yes (Death, Hospitalization, Other)
  Sender: RANBAXY
  Company Number: RO-SUN PHARMACEUTICAL INDUSTRIES LTD-2025R1-488943

PATIENT
  Age: 27 Year
  Sex: Female

DRUGS (2)
  1. FENTANYL [Suspect]
     Active Substance: FENTANYL
     Indication: Gait disturbance
     Route: 065
  2. MORPHINE [Suspect]
     Active Substance: MORPHINE
     Indication: Gait disturbance
     Route: 065

REACTIONS (2)
  - Posterior reversible encephalopathy syndrome [Fatal]
  - Coma [Fatal]
